FAERS Safety Report 5408058-8 (Version None)
Quarter: 2007Q3

REPORT INFORMATION
  Report Type: 
  Country: None (occurrence: None)
  Receive Date: 20070808
  Receipt Date: 20070801
  Transmission Date: 20080115
  Serious: Yes (Disabling)
  Sender: FDA-Public Use
  Company Number: PHEH2007US10686

PATIENT
  Sex: Female

DRUGS (1)
  1. ZOMETA [Suspect]
     Indication: OSTEOPOROSIS
     Dosage: UNK, UNK
     Dates: start: 20040101, end: 20040101

REACTIONS (9)
  - ABSCESS ORAL [None]
  - AUTONOMIC NERVOUS SYSTEM IMBALANCE [None]
  - COGNITIVE DISORDER [None]
  - DYSPNOEA [None]
  - FATIGUE [None]
  - INFECTION [None]
  - MOBILITY DECREASED [None]
  - TREMOR [None]
  - URINARY TRACT INFECTION [None]
